FAERS Safety Report 6220965-5 (Version None)
Quarter: 2009Q2

REPORT INFORMATION
  Report Type: 
  Country: None (occurrence: None)
  Receive Date: 20090610
  Receipt Date: 20090601
  Transmission Date: 20091009
  Serious: Yes (Other)
  Sender: FDA-Public Use
  Company Number: US-NOVOPROD-285391

PATIENT
  Sex: Female

DRUGS (2)
  1. ACTIVELLA 0.5/0.1 MG [Suspect]
     Indication: MENOPAUSAL SYMPTOMS
     Route: 048
     Dates: start: 20080801, end: 20080801
  2. ACTIVELLA 0.5/0.1 MG [Suspect]
     Route: 048
     Dates: start: 20081001

REACTIONS (1)
  - HEPATIC STEATOSIS [None]
